FAERS Safety Report 6119644-4 (Version None)
Quarter: 2009Q1

REPORT INFORMATION
  Report Type: 
  Country: None (occurrence: None)
  Receive Date: 20090316
  Receipt Date: 20090310
  Transmission Date: 20090719
  Serious: Yes (Other)
  Sender: FDA-Public Use
  Company Number: US-ASTRAZENECA-2009UW06242

PATIENT
  Age: 49 Year
  Sex: Female

DRUGS (1)
  1. ARIMIDEX [Suspect]
     Indication: NEOPLASM MALIGNANT
     Route: 048

REACTIONS (5)
  - ADVERSE REACTION [None]
  - HYPERLIPIDAEMIA [None]
  - LUNG CYST [None]
  - RENAL CYST [None]
  - TYPE 2 DIABETES MELLITUS [None]
